FAERS Safety Report 9399266 (Version 2)
Quarter: 2013Q3

REPORT INFORMATION
  Report Type: Spontaneous
  Country: RO (occurrence: None)
  Receive Date: 20130710
  Receipt Date: 20130821
  Transmission Date: 20140515
  Serious: No
  Sender: FDA-Public Use
  Company Number: 1306ROM014346

PATIENT
  Age: 1 Year
  Sex: Male

DRUGS (2)
  1. CEDAX [Suspect]
     Indication: ENTEROCOLITIS
     Route: 048
     Dates: start: 20121112, end: 20121114
  2. VIGANTOL (CHOLECALCIFEROL) [Concomitant]

REACTIONS (3)
  - Rash maculo-papular [None]
  - Rash vesicular [None]
  - Rash generalised [None]
